FAERS Safety Report 24122718 (Version 8)
Quarter: 2025Q1

REPORT INFORMATION
  Report Type: Spontaneous
  Country: CA (occurrence: None)
  Receive Date: 20240723
  Receipt Date: 20250321
  Transmission Date: 20250408
  Serious: Yes (Death, Life-Threatening, Hospitalization, Disabling, Other)
  Sender: ORION
  Company Number: CA-HALEON-2184015

PATIENT
  Age: 40 Year
  Sex: Female

DRUGS (286)
  1. METHOTREXATE [Suspect]
     Active Substance: METHOTREXATE
     Indication: Rheumatoid arthritis
  2. METHOTREXATE [Suspect]
     Active Substance: METHOTREXATE
  3. METHOTREXATE [Suspect]
     Active Substance: METHOTREXATE
  4. METHOTREXATE [Suspect]
     Active Substance: METHOTREXATE
  5. METHOTREXATE [Suspect]
     Active Substance: METHOTREXATE
  6. METHOTREXATE [Suspect]
     Active Substance: METHOTREXATE
  7. METHOTREXATE [Suspect]
     Active Substance: METHOTREXATE
  8. METHOTREXATE [Suspect]
     Active Substance: METHOTREXATE
  9. METHOTREXATE [Suspect]
     Active Substance: METHOTREXATE
  10. METHOTREXATE [Suspect]
     Active Substance: METHOTREXATE
  11. METHOTREXATE [Suspect]
     Active Substance: METHOTREXATE
  12. METHOTREXATE [Suspect]
     Active Substance: METHOTREXATE
  13. METHOTREXATE [Suspect]
     Active Substance: METHOTREXATE
  14. METHOTREXATE [Suspect]
     Active Substance: METHOTREXATE
  15. METHOTREXATE [Suspect]
     Active Substance: METHOTREXATE
  16. METHOTREXATE [Suspect]
     Active Substance: METHOTREXATE
  17. METHOTREXATE [Suspect]
     Active Substance: METHOTREXATE
  18. METHOTREXATE [Suspect]
     Active Substance: METHOTREXATE
  19. METHOTREXATE [Suspect]
     Active Substance: METHOTREXATE
  20. ENBREL [Suspect]
     Active Substance: ETANERCEPT
     Indication: Rheumatoid arthritis
  21. ENBREL [Suspect]
     Active Substance: ETANERCEPT
  22. ENBREL [Suspect]
     Active Substance: ETANERCEPT
  23. ENBREL [Suspect]
     Active Substance: ETANERCEPT
  24. ENBREL [Suspect]
     Active Substance: ETANERCEPT
  25. ENBREL [Suspect]
     Active Substance: ETANERCEPT
  26. ADALIMUMAB [Suspect]
     Active Substance: ADALIMUMAB
     Indication: Product used for unknown indication
  27. METHYLPREDNISOLONE SODIUM SUCCINATE [Suspect]
     Active Substance: METHYLPREDNISOLONE SODIUM SUCCINATE
     Indication: Rheumatoid arthritis
  28. METHYLPREDNISOLONE SODIUM SUCCINATE [Suspect]
     Active Substance: METHYLPREDNISOLONE SODIUM SUCCINATE
     Indication: Psoriasis
  29. METHYLPREDNISOLONE SODIUM SUCCINATE [Suspect]
     Active Substance: METHYLPREDNISOLONE SODIUM SUCCINATE
     Indication: Psoriatic arthropathy
  30. METHYLPREDNISOLONE SODIUM SUCCINATE [Suspect]
     Active Substance: METHYLPREDNISOLONE SODIUM SUCCINATE
     Indication: Prostatic specific antigen
  31. METHYLPREDNISOLONE [Suspect]
     Active Substance: METHYLPREDNISOLONE
     Indication: Product used for unknown indication
  32. FOLIC ACID [Suspect]
     Active Substance: FOLIC ACID
     Indication: Product used for unknown indication
  33. FOLIC ACID [Suspect]
     Active Substance: FOLIC ACID
  34. FOLIC ACID [Suspect]
     Active Substance: FOLIC ACID
  35. FOLIC ACID [Suspect]
     Active Substance: FOLIC ACID
  36. FOLIC ACID [Suspect]
     Active Substance: FOLIC ACID
  37. FOLIC ACID [Suspect]
     Active Substance: FOLIC ACID
  38. FOLIC ACID [Suspect]
     Active Substance: FOLIC ACID
  39. FOLIC ACID [Suspect]
     Active Substance: FOLIC ACID
  40. FOLIC ACID [Suspect]
     Active Substance: FOLIC ACID
  41. FOLIC ACID [Suspect]
     Active Substance: FOLIC ACID
  42. FOLIC ACID [Suspect]
     Active Substance: FOLIC ACID
  43. FOLIC ACID [Suspect]
     Active Substance: FOLIC ACID
  44. AIMOVIG [Suspect]
     Active Substance: ERENUMAB-AOOE
     Indication: Migraine
  45. AIMOVIG [Suspect]
     Active Substance: ERENUMAB-AOOE
  46. AIMOVIG [Suspect]
     Active Substance: ERENUMAB-AOOE
  47. DICLOFENAC SODIUM [Suspect]
     Active Substance: DICLOFENAC SODIUM
     Indication: Product used for unknown indication
  48. DICLOFENAC SODIUM [Suspect]
     Active Substance: DICLOFENAC SODIUM
  49. PANADOL [Suspect]
     Active Substance: ACETAMINOPHEN
     Indication: Rheumatoid arthritis
  50. PANADOL [Suspect]
     Active Substance: ACETAMINOPHEN
  51. PANADOL [Suspect]
     Active Substance: ACETAMINOPHEN
  52. PANADOL [Suspect]
     Active Substance: ACETAMINOPHEN
  53. PANADOL [Suspect]
     Active Substance: ACETAMINOPHEN
  54. PANADOL [Suspect]
     Active Substance: ACETAMINOPHEN
  55. DICLOFENAC [Suspect]
     Active Substance: DICLOFENAC
     Indication: Product used for unknown indication
  56. IODINE [Suspect]
     Active Substance: IODINE
     Indication: Rheumatoid arthritis
  57. IODINE [Suspect]
     Active Substance: IODINE
  58. HYDROCORTISONE [Suspect]
     Active Substance: HYDROCORTISONE
     Indication: Product used for unknown indication
  59. PHENYLEPHRINE HYDROCHLORIDE [Suspect]
     Active Substance: PHENYLEPHRINE HYDROCHLORIDE
     Indication: Rheumatoid arthritis
  60. CETIRIZINE HYDROCHLORIDE [Suspect]
     Active Substance: CETIRIZINE HYDROCHLORIDE
     Indication: Rheumatoid arthritis
  61. CETIRIZINE HYDROCHLORIDE [Suspect]
     Active Substance: CETIRIZINE HYDROCHLORIDE
  62. CETIRIZINE HYDROCHLORIDE [Suspect]
     Active Substance: CETIRIZINE HYDROCHLORIDE
  63. CETIRIZINE HYDROCHLORIDE [Suspect]
     Active Substance: CETIRIZINE HYDROCHLORIDE
  64. CETIRIZINE HYDROCHLORIDE [Suspect]
     Active Substance: CETIRIZINE HYDROCHLORIDE
  65. CETIRIZINE HYDROCHLORIDE [Suspect]
     Active Substance: CETIRIZINE HYDROCHLORIDE
  66. CETIRIZINE HYDROCHLORIDE [Suspect]
     Active Substance: CETIRIZINE HYDROCHLORIDE
  67. CETIRIZINE HYDROCHLORIDE [Suspect]
     Active Substance: CETIRIZINE HYDROCHLORIDE
  68. CETIRIZINE HYDROCHLORIDE [Suspect]
     Active Substance: CETIRIZINE HYDROCHLORIDE
  69. CETIRIZINE HYDROCHLORIDE [Suspect]
     Active Substance: CETIRIZINE HYDROCHLORIDE
  70. CETIRIZINE HYDROCHLORIDE [Suspect]
     Active Substance: CETIRIZINE HYDROCHLORIDE
  71. CETIRIZINE HYDROCHLORIDE [Suspect]
     Active Substance: CETIRIZINE HYDROCHLORIDE
  72. CETIRIZINE HYDROCHLORIDE [Suspect]
     Active Substance: CETIRIZINE HYDROCHLORIDE
  73. CETIRIZINE HYDROCHLORIDE [Suspect]
     Active Substance: CETIRIZINE HYDROCHLORIDE
  74. CETIRIZINE HYDROCHLORIDE [Suspect]
     Active Substance: CETIRIZINE HYDROCHLORIDE
  75. CETIRIZINE HYDROCHLORIDE [Suspect]
     Active Substance: CETIRIZINE HYDROCHLORIDE
  76. CETIRIZINE HYDROCHLORIDE [Suspect]
     Active Substance: CETIRIZINE HYDROCHLORIDE
  77. CETIRIZINE HYDROCHLORIDE [Suspect]
     Active Substance: CETIRIZINE HYDROCHLORIDE
  78. CETIRIZINE HYDROCHLORIDE [Suspect]
     Active Substance: CETIRIZINE HYDROCHLORIDE
  79. CETIRIZINE HYDROCHLORIDE [Suspect]
     Active Substance: CETIRIZINE HYDROCHLORIDE
  80. PSEUDOEPHEDRINE HYDROCHLORIDE [Suspect]
     Active Substance: PSEUDOEPHEDRINE HYDROCHLORIDE
     Indication: Rheumatoid arthritis
  81. PSEUDOEPHEDRINE HYDROCHLORIDE [Suspect]
     Active Substance: PSEUDOEPHEDRINE HYDROCHLORIDE
  82. PSEUDOEPHEDRINE HYDROCHLORIDE [Suspect]
     Active Substance: PSEUDOEPHEDRINE HYDROCHLORIDE
  83. PSEUDOEPHEDRINE HYDROCHLORIDE [Suspect]
     Active Substance: PSEUDOEPHEDRINE HYDROCHLORIDE
  84. PSEUDOEPHEDRINE HYDROCHLORIDE [Suspect]
     Active Substance: PSEUDOEPHEDRINE HYDROCHLORIDE
  85. PSEUDOEPHEDRINE HYDROCHLORIDE [Suspect]
     Active Substance: PSEUDOEPHEDRINE HYDROCHLORIDE
  86. PSEUDOEPHEDRINE HYDROCHLORIDE [Suspect]
     Active Substance: PSEUDOEPHEDRINE HYDROCHLORIDE
  87. ACTEMRA [Suspect]
     Active Substance: TOCILIZUMAB
     Indication: Product used for unknown indication
  88. ACTEMRA [Suspect]
     Active Substance: TOCILIZUMAB
  89. ACTEMRA [Suspect]
     Active Substance: TOCILIZUMAB
  90. ACTEMRA [Suspect]
     Active Substance: TOCILIZUMAB
  91. ACTEMRA [Suspect]
     Active Substance: TOCILIZUMAB
  92. ACTEMRA [Suspect]
     Active Substance: TOCILIZUMAB
  93. ACTEMRA [Suspect]
     Active Substance: TOCILIZUMAB
  94. ACTEMRA [Suspect]
     Active Substance: TOCILIZUMAB
  95. ACTEMRA [Suspect]
     Active Substance: TOCILIZUMAB
  96. ACTEMRA [Suspect]
     Active Substance: TOCILIZUMAB
  97. ACTEMRA [Suspect]
     Active Substance: TOCILIZUMAB
  98. ACTEMRA [Suspect]
     Active Substance: TOCILIZUMAB
  99. ACTEMRA [Suspect]
     Active Substance: TOCILIZUMAB
  100. ACTEMRA [Suspect]
     Active Substance: TOCILIZUMAB
  101. ACTEMRA [Suspect]
     Active Substance: TOCILIZUMAB
  102. ACTEMRA [Suspect]
     Active Substance: TOCILIZUMAB
  103. ACTEMRA [Suspect]
     Active Substance: TOCILIZUMAB
  104. ALENDRONATE SODIUM [Suspect]
     Active Substance: ALENDRONATE SODIUM
     Indication: Rheumatoid arthritis
  105. ALENDRONATE SODIUM [Suspect]
     Active Substance: ALENDRONATE SODIUM
  106. DICLOFENAC SODIUM [Suspect]
     Active Substance: DICLOFENAC SODIUM
     Indication: Product used for unknown indication
  107. LEFLUNOMIDE [Suspect]
     Active Substance: LEFLUNOMIDE
     Indication: Rheumatoid arthritis
  108. LEFLUNOMIDE [Suspect]
     Active Substance: LEFLUNOMIDE
  109. LEFLUNOMIDE [Suspect]
     Active Substance: LEFLUNOMIDE
  110. LEFLUNOMIDE [Suspect]
     Active Substance: LEFLUNOMIDE
  111. LEFLUNOMIDE [Suspect]
     Active Substance: LEFLUNOMIDE
  112. LEFLUNOMIDE [Suspect]
     Active Substance: LEFLUNOMIDE
  113. LEFLUNOMIDE [Suspect]
     Active Substance: LEFLUNOMIDE
  114. LEFLUNOMIDE [Suspect]
     Active Substance: LEFLUNOMIDE
  115. LEFLUNOMIDE [Suspect]
     Active Substance: LEFLUNOMIDE
  116. LEFLUNOMIDE [Suspect]
     Active Substance: LEFLUNOMIDE
  117. LEFLUNOMIDE [Suspect]
     Active Substance: LEFLUNOMIDE
  118. LEFLUNOMIDE [Suspect]
     Active Substance: LEFLUNOMIDE
  119. LEFLUNOMIDE [Suspect]
     Active Substance: LEFLUNOMIDE
  120. LEFLUNOMIDE [Suspect]
     Active Substance: LEFLUNOMIDE
  121. LEFLUNOMIDE [Suspect]
     Active Substance: LEFLUNOMIDE
  122. PREDNISONE [Suspect]
     Active Substance: PREDNISONE
     Indication: Rheumatoid arthritis
  123. PREDNISONE [Suspect]
     Active Substance: PREDNISONE
  124. PREDNISONE [Suspect]
     Active Substance: PREDNISONE
  125. PREDNISONE [Suspect]
     Active Substance: PREDNISONE
  126. PREDNISONE [Suspect]
     Active Substance: PREDNISONE
  127. PREDNISONE [Suspect]
     Active Substance: PREDNISONE
  128. PREDNISONE [Suspect]
     Active Substance: PREDNISONE
  129. PREDNISONE [Suspect]
     Active Substance: PREDNISONE
  130. PREDNISONE [Suspect]
     Active Substance: PREDNISONE
  131. APREMILAST [Suspect]
     Active Substance: APREMILAST
     Indication: Product used for unknown indication
  132. APREMILAST [Suspect]
     Active Substance: APREMILAST
  133. APREMILAST [Suspect]
     Active Substance: APREMILAST
  134. ARAVA [Suspect]
     Active Substance: LEFLUNOMIDE
     Indication: Rheumatoid arthritis
  135. ARAVA [Suspect]
     Active Substance: LEFLUNOMIDE
  136. ARAVA [Suspect]
     Active Substance: LEFLUNOMIDE
  137. ATOMOXETINE [Suspect]
     Active Substance: ATOMOXETINE
     Indication: Migraine
  138. AZATHIOPRINE SODIUM [Suspect]
     Active Substance: AZATHIOPRINE SODIUM
     Indication: Product used for unknown indication
  139. BERINERT [Suspect]
     Active Substance: HUMAN C1-ESTERASE INHIBITOR
     Indication: Product used for unknown indication
  140. BOTOX [Suspect]
     Active Substance: ONABOTULINUMTOXINA
     Indication: Product used for unknown indication
  141. BOTOX [Suspect]
     Active Substance: ONABOTULINUMTOXINA
  142. BUTRANS [Suspect]
     Active Substance: BUPRENORPHINE
     Indication: Product used for unknown indication
  143. BUTRANS [Suspect]
     Active Substance: BUPRENORPHINE
  144. CANDESARTAN [Suspect]
     Active Substance: CANDESARTAN
     Indication: Migraine
  145. CIMZIA [Suspect]
     Active Substance: CERTOLIZUMAB PEGOL
     Indication: Rheumatoid arthritis
  146. CIMZIA [Suspect]
     Active Substance: CERTOLIZUMAB PEGOL
     Indication: Psoriasis
  147. CIMZIA [Suspect]
     Active Substance: CERTOLIZUMAB PEGOL
  148. CIMZIA [Suspect]
     Active Substance: CERTOLIZUMAB PEGOL
  149. CIMZIA [Suspect]
     Active Substance: CERTOLIZUMAB PEGOL
  150. CIMZIA [Suspect]
     Active Substance: CERTOLIZUMAB PEGOL
  151. DESOXIMETASONE [Suspect]
     Active Substance: DESOXIMETASONE
     Indication: Rheumatoid arthritis
  152. DESOXIMETASONE [Suspect]
     Active Substance: DESOXIMETASONE
  153. DESOXIMETASONE [Suspect]
     Active Substance: DESOXIMETASONE
  154. DESOXIMETASONE [Suspect]
     Active Substance: DESOXIMETASONE
  155. DESOXIMETASONE [Suspect]
     Active Substance: DESOXIMETASONE
  156. DESOXIMETASONE [Suspect]
     Active Substance: DESOXIMETASONE
  157. DESOXIMETASONE [Suspect]
     Active Substance: DESOXIMETASONE
  158. DESOXIMETASONE [Suspect]
     Active Substance: DESOXIMETASONE
  159. DESOXIMETASONE [Suspect]
     Active Substance: DESOXIMETASONE
  160. DESOXIMETASONE [Suspect]
     Active Substance: DESOXIMETASONE
  161. DESOXIMETASONE [Suspect]
     Active Substance: DESOXIMETASONE
  162. DESOXIMETASONE [Suspect]
     Active Substance: DESOXIMETASONE
  163. DOMPERIDONE MALEATE [Suspect]
     Active Substance: DOMPERIDONE MALEATE
     Indication: Product used for unknown indication
  164. DOMPERIDONE MALEATE [Suspect]
     Active Substance: DOMPERIDONE MALEATE
  165. ERELZI [Suspect]
     Active Substance: ETANERCEPT-SZZS
     Indication: Rheumatoid arthritis
  166. ERELZI [Suspect]
     Active Substance: ETANERCEPT-SZZS
  167. ERGOCALCIFEROL [Suspect]
     Active Substance: ERGOCALCIFEROL
     Indication: Product used for unknown indication
  168. LAMICTAL [Suspect]
     Active Substance: LAMOTRIGINE
     Indication: Product used for unknown indication
  169. LAMICTAL [Suspect]
     Active Substance: LAMOTRIGINE
  170. LAMICTAL [Suspect]
     Active Substance: LAMOTRIGINE
  171. LAMICTAL [Suspect]
     Active Substance: LAMOTRIGINE
  172. LEFLUNOMIDE [Suspect]
     Active Substance: LEFLUNOMIDE
     Indication: Rheumatoid arthritis
  173. LEFLUNOMIDE [Suspect]
     Active Substance: LEFLUNOMIDE
  174. LEFLUNOMIDE [Suspect]
     Active Substance: LEFLUNOMIDE
  175. LEFLUNOMIDE [Suspect]
     Active Substance: LEFLUNOMIDE
  176. LEFLUNOMIDE [Suspect]
     Active Substance: LEFLUNOMIDE
  177. LEFLUNOMIDE [Suspect]
     Active Substance: LEFLUNOMIDE
  178. LEFLUNOMIDE [Suspect]
     Active Substance: LEFLUNOMIDE
  179. LEFLUNOMIDE [Suspect]
     Active Substance: LEFLUNOMIDE
  180. LEFLUNOMIDE [Suspect]
     Active Substance: LEFLUNOMIDE
  181. MINOCYCLINE HYDROCHLORIDE [Suspect]
     Active Substance: MINOCYCLINE HYDROCHLORIDE
     Indication: Rheumatoid arthritis
  182. MINOCYCLINE HYDROCHLORIDE [Suspect]
     Active Substance: MINOCYCLINE HYDROCHLORIDE
  183. MYOCHRYSINE [Suspect]
     Active Substance: GOLD SODIUM THIOMALATE
     Indication: Rheumatoid arthritis
  184. ACETAMINOPHEN [Suspect]
     Active Substance: ACETAMINOPHEN
     Indication: Rheumatoid arthritis
  185. ACETAMINOPHEN [Suspect]
     Active Substance: ACETAMINOPHEN
  186. ACETAMINOPHEN [Suspect]
     Active Substance: ACETAMINOPHEN
  187. ACETAMINOPHEN [Suspect]
     Active Substance: ACETAMINOPHEN
  188. ACETAMINOPHEN [Suspect]
     Active Substance: ACETAMINOPHEN
  189. ACETAMINOPHEN [Suspect]
     Active Substance: ACETAMINOPHEN
  190. ACETAMINOPHEN [Suspect]
     Active Substance: ACETAMINOPHEN
  191. CORTISONE ACETATE [Suspect]
     Active Substance: CORTISONE ACETATE
     Indication: Rheumatoid arthritis
  192. CORTISONE ACETATE [Suspect]
     Active Substance: CORTISONE ACETATE
  193. CORTISONE ACETATE [Suspect]
     Active Substance: CORTISONE ACETATE
  194. CORTISONE ACETATE [Suspect]
     Active Substance: CORTISONE ACETATE
  195. FLUMETHASONE\SALICYLIC ACID [Suspect]
     Active Substance: FLUMETHASONE\SALICYLIC ACID
     Indication: Rheumatoid arthritis
  196. FLUMETHASONE\SALICYLIC ACID [Suspect]
     Active Substance: FLUMETHASONE\SALICYLIC ACID
  197. FLUMETHASONE\SALICYLIC ACID [Suspect]
     Active Substance: FLUMETHASONE\SALICYLIC ACID
  198. FLUMETHASONE PIVALATE [Suspect]
     Active Substance: FLUMETHASONE PIVALATE
     Indication: Product used for unknown indication
  199. FOSAMAX [Suspect]
     Active Substance: ALENDRONATE SODIUM
     Indication: Rheumatoid arthritis
  200. FOSAMAX [Suspect]
     Active Substance: ALENDRONATE SODIUM
  201. FOSAMAX [Suspect]
     Active Substance: ALENDRONATE SODIUM
  202. FOSAMAX [Suspect]
     Active Substance: ALENDRONATE SODIUM
  203. FOSAMAX [Suspect]
     Active Substance: ALENDRONATE SODIUM
  204. FOSAMAX [Suspect]
     Active Substance: ALENDRONATE SODIUM
  205. FOSAMAX [Suspect]
     Active Substance: ALENDRONATE SODIUM
  206. FOSAMAX [Suspect]
     Active Substance: ALENDRONATE SODIUM
  207. MENTHOL\ZINC OXIDE [Suspect]
     Active Substance: MENTHOL\ZINC OXIDE
     Indication: Product used for unknown indication
  208. GOLD SODIUM THIOMALATE [Suspect]
     Active Substance: GOLD SODIUM THIOMALATE
     Indication: Product used for unknown indication
  209. SIMPONI [Suspect]
     Active Substance: GOLIMUMAB
     Indication: Rheumatoid arthritis
  210. SIMPONI [Suspect]
     Active Substance: GOLIMUMAB
     Indication: Prostatic specific antigen
  211. MYRBETRIQ [Suspect]
     Active Substance: MIRABEGRON
     Indication: Product used for unknown indication
  212. MYRBETRIQ [Suspect]
     Active Substance: MIRABEGRON
  213. NAPROXEN [Suspect]
     Active Substance: NAPROXEN
     Indication: Product used for unknown indication
  214. NAPROXEN [Suspect]
     Active Substance: NAPROXEN
  215. NAPROXEN [Suspect]
     Active Substance: NAPROXEN
  216. NICOTINAMIDE [Suspect]
     Active Substance: NIACINAMIDE
     Indication: Product used for unknown indication
  217. NUCALA [Suspect]
     Active Substance: MEPOLIZUMAB
     Indication: Product used for unknown indication
  218. OXYCODONE [Suspect]
     Active Substance: OXYCODONE
     Indication: Product used for unknown indication
  219. SULFADIAZINE\SULFAMERAZINE\SULFATHIAZOLE [Suspect]
     Active Substance: SULFADIAZINE\SULFAMERAZINE\SULFATHIAZOLE
     Indication: Product used for unknown indication
  220. PREDNISONE [Suspect]
     Active Substance: PREDNISONE
     Indication: Rheumatoid arthritis
  221. PREDNISONE [Suspect]
     Active Substance: PREDNISONE
  222. PREDNISONE [Suspect]
     Active Substance: PREDNISONE
  223. PREDNISONE [Suspect]
     Active Substance: PREDNISONE
  224. PREDNISONE [Suspect]
     Active Substance: PREDNISONE
  225. PREDNISONE [Suspect]
     Active Substance: PREDNISONE
  226. PREDNISONE [Suspect]
     Active Substance: PREDNISONE
  227. PREDNISONE [Suspect]
     Active Substance: PREDNISONE
  228. COSENTYX [Suspect]
     Active Substance: SECUKINUMAB
     Indication: Rheumatoid arthritis
  229. COSENTYX [Suspect]
     Active Substance: SECUKINUMAB
     Indication: Psoriatic arthropathy
  230. COSENTYX [Suspect]
     Active Substance: SECUKINUMAB
  231. COSENTYX [Suspect]
     Active Substance: SECUKINUMAB
  232. HUMIRA [Suspect]
     Active Substance: ADALIMUMAB
     Indication: Product used for unknown indication
  233. HUMIRA [Suspect]
     Active Substance: ADALIMUMAB
  234. HUMIRA [Suspect]
     Active Substance: ADALIMUMAB
  235. HUMIRA [Suspect]
     Active Substance: ADALIMUMAB
  236. HUMIRA [Suspect]
     Active Substance: ADALIMUMAB
  237. HUMIRA [Suspect]
     Active Substance: ADALIMUMAB
  238. HUMIRA [Suspect]
     Active Substance: ADALIMUMAB
  239. HYDROXYCHLOROQUINE [Suspect]
     Active Substance: HYDROXYCHLOROQUINE
     Indication: Rheumatoid arthritis
  240. HYDROXYCHLOROQUINE [Suspect]
     Active Substance: HYDROXYCHLOROQUINE
  241. HYDROXYCHLOROQUINE [Suspect]
     Active Substance: HYDROXYCHLOROQUINE
  242. HYDROXYCHLOROQUINE [Suspect]
     Active Substance: HYDROXYCHLOROQUINE
  243. HYDROXYCHLOROQUINE [Suspect]
     Active Substance: HYDROXYCHLOROQUINE
  244. HYDROXYCHLOROQUINE [Suspect]
     Active Substance: HYDROXYCHLOROQUINE
  245. HYDROXYCHLOROQUINE [Suspect]
     Active Substance: HYDROXYCHLOROQUINE
  246. HYDROXYCHLOROQUINE [Suspect]
     Active Substance: HYDROXYCHLOROQUINE
  247. HYDROXYCHLOROQUINE [Suspect]
     Active Substance: HYDROXYCHLOROQUINE
  248. HYDROXYCHLOROQUINE [Suspect]
     Active Substance: HYDROXYCHLOROQUINE
  249. HYDROXYCHLOROQUINE [Suspect]
     Active Substance: HYDROXYCHLOROQUINE
  250. HYDROXYCHLOROQUINE [Suspect]
     Active Substance: HYDROXYCHLOROQUINE
  251. HYDROXYCHLOROQUINE [Suspect]
     Active Substance: HYDROXYCHLOROQUINE
  252. HYDROXYCHLOROQUINE [Suspect]
     Active Substance: HYDROXYCHLOROQUINE
  253. HYDROXYCHLOROQUINE [Suspect]
     Active Substance: HYDROXYCHLOROQUINE
  254. HYDROXYCHLOROQUINE [Suspect]
     Active Substance: HYDROXYCHLOROQUINE
  255. HYDROXYCHLOROQUINE [Suspect]
     Active Substance: HYDROXYCHLOROQUINE
  256. HYDROXYCHLOROQUINE [Suspect]
     Active Substance: HYDROXYCHLOROQUINE
  257. HYDROXYCHLOROQUINE [Suspect]
     Active Substance: HYDROXYCHLOROQUINE
  258. HYDROXYCHLOROQUINE [Suspect]
     Active Substance: HYDROXYCHLOROQUINE
  259. HYDROXYCHLOROQUINE [Suspect]
     Active Substance: HYDROXYCHLOROQUINE
  260. HYDROXYCHLOROQUINE [Suspect]
     Active Substance: HYDROXYCHLOROQUINE
  261. HYDROXYCHLOROQUINE [Suspect]
     Active Substance: HYDROXYCHLOROQUINE
  262. HYDROXYCHLOROQUINE [Suspect]
     Active Substance: HYDROXYCHLOROQUINE
  263. HYDROXYCHLOROQUINE [Suspect]
     Active Substance: HYDROXYCHLOROQUINE
  264. PHTHALYLSULFATHIAZOLE [Suspect]
     Active Substance: PHTHALYLSULFATHIAZOLE
     Indication: Product used for unknown indication
  265. PHTHALYLSULFATHIAZOLE [Suspect]
     Active Substance: PHTHALYLSULFATHIAZOLE
  266. PHTHALYLSULFATHIAZOLE [Suspect]
     Active Substance: PHTHALYLSULFATHIAZOLE
  267. PHTHALYLSULFATHIAZOLE [Suspect]
     Active Substance: PHTHALYLSULFATHIAZOLE
  268. PHTHALYLSULFATHIAZOLE [Suspect]
     Active Substance: PHTHALYLSULFATHIAZOLE
  269. PHTHALYLSULFATHIAZOLE [Suspect]
     Active Substance: PHTHALYLSULFATHIAZOLE
  270. PHTHALYLSULFATHIAZOLE [Suspect]
     Active Substance: PHTHALYLSULFATHIAZOLE
  271. PHTHALYLSULFATHIAZOLE [Suspect]
     Active Substance: PHTHALYLSULFATHIAZOLE
  272. IMURAN [Suspect]
     Active Substance: AZATHIOPRINE
     Indication: Product used for unknown indication
  273. HYDROCORTISONE [Suspect]
     Active Substance: HYDROCORTISONE
     Indication: Product used for unknown indication
  274. METHYLPREDNISOLONE ACETATE [Suspect]
     Active Substance: METHYLPREDNISOLONE ACETATE
     Indication: Product used for unknown indication
  275. ERGOCALCIFEROL\RETINOL [Suspect]
     Active Substance: ERGOCALCIFEROL\RETINOL
     Indication: Product used for unknown indication
  276. NICOTINAMIDE [Suspect]
     Active Substance: NIACINAMIDE
     Indication: Product used for unknown indication
  277. DESOXIMETASONE [Suspect]
     Active Substance: DESOXIMETASONE
     Indication: Rheumatoid arthritis
  278. DESOXIMETASONE [Suspect]
     Active Substance: DESOXIMETASONE
  279. DESOXIMETASONE [Suspect]
     Active Substance: DESOXIMETASONE
  280. DESOXIMETASONE [Suspect]
     Active Substance: DESOXIMETASONE
  281. DESOXIMETASONE [Suspect]
     Active Substance: DESOXIMETASONE
  282. DESOXIMETASONE [Suspect]
     Active Substance: DESOXIMETASONE
  283. DESOXIMETASONE [Suspect]
     Active Substance: DESOXIMETASONE
  284. DESOXIMETASONE [Suspect]
     Active Substance: DESOXIMETASONE
  285. FLUMETHASONE PIVALATE [Suspect]
     Active Substance: FLUMETHASONE PIVALATE
     Indication: Product used for unknown indication
  286. IODINE [Suspect]
     Active Substance: IODINE
     Indication: Product used for unknown indication

REACTIONS (18)
  - Drug ineffective [Fatal]
  - Off label use [Fatal]
  - Contraindicated product administered [Fatal]
  - Product use issue [Fatal]
  - Pericarditis [Fatal]
  - Systemic lupus erythematosus [Fatal]
  - Type 2 diabetes mellitus [Fatal]
  - Psoriatic arthropathy [Fatal]
  - Rheumatoid arthritis [Fatal]
  - Pemphigus [Fatal]
  - Nausea [Fatal]
  - Onychomadesis [Fatal]
  - Onychomycosis [Fatal]
  - Pain [Fatal]
  - Rash [Fatal]
  - Swelling [Fatal]
  - Wound [Fatal]
  - Synovitis [Fatal]
